FAERS Safety Report 12817390 (Version 2)
Quarter: 2016Q4

REPORT INFORMATION
  Report Type: Spontaneous
  Country: US (occurrence: US)
  Receive Date: 20161006
  Receipt Date: 20161212
  Transmission Date: 20170207
  Serious: No
  Sender: FDA-Public Use
  Company Number: US-009507513-1609USA012650

PATIENT

DRUGS (1)
  1. TICE BCG [Suspect]
     Active Substance: BACILLUS CALMETTE-GUERIN SUBSTRAIN TICE LIVE ANTIGEN
     Dosage: UNK
     Dates: start: 2015, end: 20160926

REACTIONS (1)
  - Neoplasm [Unknown]

NARRATIVE: CASE EVENT DATE: 2016
